FAERS Safety Report 8319735-3 (Version None)
Quarter: 2012Q2

REPORT INFORMATION
  Report Type: 
  Country: None (occurrence: None)
  Receive Date: 20120427
  Receipt Date: 20120418
  Transmission Date: 20120825
  Serious: Yes (Other)
  Sender: FDA-Public Use
  Company Number: US-ASTRAZENECA-2011SE59958

PATIENT
  Age: 44 Year
  Sex: Female

DRUGS (33)
  1. NEXIUM [Suspect]
     Indication: GASTROOESOPHAGEAL REFLUX DISEASE
     Route: 048
  2. XOPENEX [Concomitant]
     Indication: WHEEZING
     Dosage: 12.5 MG/3 ML INHALE ONE PUFF AS DIRECTED THREE TIMES A DAY
     Route: 055
  3. XOPENEX [Concomitant]
     Dosage: 45 MCG/ACTUATION AEROSOL INHALER INHALE 2 PUFF TWO TIMES A DAY
     Route: 055
  4. VITAMIN D [Concomitant]
     Dosage: 1000 UNIT DAILY
     Route: 048
  5. CLEMASTINE [Concomitant]
     Dosage: 1.5 TABLET 2 TIMES A DAY PER HOME DOSING
     Route: 048
  6. SODIUM CHLORIDE NASI [Concomitant]
     Dosage: 1 SPRAY EVERY 8 HOURS
     Route: 045
  7. TOPAMAX [Concomitant]
     Route: 048
  8. XOPENEX [Concomitant]
     Dosage: 45 MCG/ACTUATION AEROSOL INHALER INHALE 2 PUFF TWO TIMES A DAY
     Route: 055
  9. QVAR 40 [Concomitant]
     Dosage: INHALE 2 PUFFS TWO TIME A DAY
     Route: 055
  10. CLONAZEPAM [Concomitant]
     Route: 048
  11. MAGTAB [Concomitant]
     Route: 048
  12. SPIRIVA WITH HANDIHALER [Concomitant]
     Dosage: INHALE 1 PUFF CAP W/INHALATION DEVICE DAILY
  13. IRON [Concomitant]
     Route: 048
  14. XOPENEX [Concomitant]
     Dosage: 45 MCG/ACTUATION AEROSOL INHALER INHALE 2 PUFF TWO TIMES A DAY
     Route: 055
  15. CINNAMON [Concomitant]
     Route: 048
  16. HYDROCHLOROTHIAZIDE [Concomitant]
     Dosage: HALF TO 1 DAILY AS NEEDED
     Route: 048
  17. MOMETASONE FUROATE [Concomitant]
     Dosage: 2 PUFF INTO EACH NOSTRILS TWO TIMES A DAY
     Route: 045
  18. PRILOSEC [Suspect]
     Indication: GASTROOESOPHAGEAL REFLUX DISEASE
     Route: 048
  19. XOPENEX [Concomitant]
     Indication: COUGH
     Dosage: 12.5 MG/3 ML INHALE ONE PUFF AS DIRECTED THREE TIMES A DAY
     Route: 055
  20. MAGNESIUM HYDROXIDE TAB [Concomitant]
     Dosage: ONE IN AM AFTER PREDNISONE. ONE IN PM IF NEEDED
     Route: 048
  21. MIRALAX [Concomitant]
     Dosage: 3350 17 GRAM/DOSE 1 TSF 2 TIMES A DAY AS NEEDED
     Route: 048
  22. ATROVENT [Concomitant]
     Dosage: 2 PUFFS 2 TIMES A DAY PM
     Route: 045
  23. METFORMIN HCL [Concomitant]
     Route: 048
  24. MORPHINE [Concomitant]
     Indication: PAIN
     Dosage: 15 MG EVERY 6 TO 8 HOURS AS NEEDED
     Route: 048
  25. SEROQUEL [Suspect]
     Route: 048
  26. TESSALON [Concomitant]
     Route: 048
  27. CODEINE [Concomitant]
     Dosage: AS NEEDED
     Route: 048
  28. LEVSIN PB [Concomitant]
     Indication: PAIN
     Dosage: 1-2 TABLET EVERY 6 HOURS AS NEEDED, EVERY 4-6 HOURS PRN
     Route: 060
  29. DESENEX JOCK ITCH [Concomitant]
     Dosage: APPLY TO SKIN
     Route: 061
  30. NORTRIPTYLINE HCL [Concomitant]
     Route: 048
  31. PULMICORT FLEXHALER [Suspect]
     Dosage: 180 MCG TWO PUFFS TWICE A DAY
     Route: 055
  32. XOPENEX [Concomitant]
     Indication: DYSPNOEA
     Dosage: 12.5 MG/3 ML INHALE ONE PUFF AS DIRECTED THREE TIMES A DAY
     Route: 055
  33. PREDNISONE [Concomitant]
     Route: 048

REACTIONS (18)
  - ASPIRATION [None]
  - MULTIPLE ALLERGIES [None]
  - MIGRAINE [None]
  - HEADACHE [None]
  - OEDEMA [None]
  - OBESITY [None]
  - INAPPROPRIATE SCHEDULE OF DRUG ADMINISTRATION [None]
  - HERNIA [None]
  - ABDOMINAL DISCOMFORT [None]
  - POLYCYSTIC OVARIES [None]
  - ASTHMA [None]
  - BIPOLAR DISORDER [None]
  - INTENTIONAL DRUG MISUSE [None]
  - GASTROOESOPHAGEAL REFLUX DISEASE [None]
  - LUNG DISORDER [None]
  - ANAPHYLACTIC SHOCK [None]
  - DRUG INTOLERANCE [None]
  - DRUG HYPERSENSITIVITY [None]
